FAERS Safety Report 21296313 (Version 1)
Quarter: 2022Q3

REPORT INFORMATION
  Report Type: Spontaneous
  Country: US (occurrence: US)
  Receive Date: 20220906
  Receipt Date: 20220906
  Transmission Date: 20221027
  Serious: Yes (Death, Hospitalization)
  Sender: FDA-Public Use
  Company Number: US-STRIDES ARCOLAB LIMITED-2022SP011085

PATIENT
  Age: 75 Year
  Sex: Male

DRUGS (3)
  1. PREDNISOLONE [Suspect]
     Active Substance: PREDNISOLONE
     Indication: Sarcoidosis
     Dosage: 10 MILLIGRAM, PER DAY (PATIENT HAD RECEIVING FOR THE PAST 4 YEARS)
     Route: 065
  2. PREDNISOLONE [Suspect]
     Active Substance: PREDNISOLONE
     Dosage: 20 MILLIGRAM, DAILY (DOSE WAS INCREASED ONE MONTH PRIOR TO PRESENTATION)
     Route: 065
  3. PREDNISOLONE [Suspect]
     Active Substance: PREDNISOLONE
     Dosage: 40 MILLIGRAM, BID
     Route: 065

REACTIONS (1)
  - Pneumocystis jirovecii pneumonia [Fatal]
